FAERS Safety Report 8021990-4 (Version None)
Quarter: 2012Q1

REPORT INFORMATION
  Report Type: 
  Country: None (occurrence: None)
  Receive Date: 20120104
  Receipt Date: 20111223
  Transmission Date: 20120608
  Serious: Yes (Hospitalization, Other)
  Sender: FDA-Public Use
  Company Number: US-ELI_LILLY_AND_COMPANY-US201009006598

PATIENT
  Sex: Female

DRUGS (4)
  1. ANTIHYPERTENSIVES [Concomitant]
  2. FORTEO [Suspect]
     Indication: OSTEOPOROSIS
     Dosage: UNK
  3. AZILECT [Concomitant]
     Indication: PARKINSON'S DISEASE
  4. SINEMET [Concomitant]
     Indication: PARKINSON'S DISEASE

REACTIONS (2)
  - DIARRHOEA [None]
  - HIP FRACTURE [None]
